FAERS Safety Report 7238327-0 (Version None)
Quarter: 2011Q1

REPORT INFORMATION
  Report Type: 
  Country: None (occurrence: None)
  Receive Date: 20110121
  Receipt Date: 20110117
  Transmission Date: 20110831
  Serious: Yes (Hospitalization)
  Sender: FDA-Public Use
  Company Number: US-B.I. PHARMACEUTICALS,INC./RIDGEFIELD-2011-BP-01182BP

PATIENT
  Age: 75 Year
  Sex: Male

DRUGS (5)
  1. AMIODARONE [Concomitant]
     Indication: CARDIAC DISORDER
  2. ALLOPURINOL [Concomitant]
     Indication: GOUT
  3. ZOCOR [Concomitant]
     Indication: BLOOD CHOLESTEROL ABNORMAL
  4. PRADAXA [Suspect]
     Indication: ATRIAL FIBRILLATION
     Dosage: 300 MG
     Route: 048
     Dates: start: 20110114, end: 20110114
  5. CELEBREX [Concomitant]
     Indication: ARTHRITIS

REACTIONS (1)
  - RECTAL HAEMORRHAGE [None]
